FAERS Safety Report 7913566-1 (Version None)
Quarter: 2011Q4

REPORT INFORMATION
  Report Type: 
  Country: None (occurrence: None)
  Receive Date: 20111115
  Receipt Date: 20111103
  Transmission Date: 20120403
  Serious: Yes (Hospitalization)
  Sender: FDA-Public Use
  Company Number: US-JNJFOC-20111101994

PATIENT
  Sex: Male
  Weight: 77.11 kg

DRUGS (3)
  1. REMICADE [Suspect]
     Indication: IRRITABLE BOWEL SYNDROME
     Route: 042
     Dates: start: 20101001
  2. ASACOL [Concomitant]
     Indication: GASTRIC DISORDER
     Route: 048
  3. REMICADE [Suspect]
     Indication: COLITIS
     Route: 042
     Dates: start: 20101001

REACTIONS (3)
  - HEART RATE IRREGULAR [None]
  - STAPHYLOCOCCAL INFECTION [None]
  - CEREBROVASCULAR ACCIDENT [None]
